FAERS Safety Report 4989233-3 (Version None)
Quarter: 2006Q2

REPORT INFORMATION
  Report Type: 
  Country: None (occurrence: None)
  Receive Date: 20060425
  Receipt Date: 20060410
  Transmission Date: 20061013
  Serious: Yes (Death, Life-Threatening, Hospitalization, Other)
  Sender: FDA-Public Use
  Company Number: 2006048548

PATIENT
  Age: 75 Year
  Sex: Female
  Weight: 61.2356 kg

DRUGS (1)
  1. SUTENT [Suspect]
     Indication: RENAL CELL CARCINOMA STAGE UNSPECIFIED
     Dosage: 50 MG (50 MG, 28 DAYS ON 2 WEEKS OFF), ORAL
     Route: 048
     Dates: start: 20040413, end: 20060403

REACTIONS (2)
  - HEPATIC FAILURE [None]
  - PORTAL VEIN THROMBOSIS [None]
